FAERS Safety Report 6273447-9 (Version None)
Quarter: 2009Q3

REPORT INFORMATION
  Report Type: 
  Country: None (occurrence: None)
  Receive Date: 20090713
  Receipt Date: 20081017
  Transmission Date: 20100115
  Serious: Yes (Other)
  Sender: FDA-Public Use
  Company Number: 592324

PATIENT
  Age: 82 Year
  Sex: Female
  Weight: 54.9 kg

DRUGS (11)
  1. BONIVA [Suspect]
     Indication: OSTEOPOROSIS
     Dosage: 1 PER MONTH ORAL
     Route: 048
     Dates: start: 20070104
  2. PRILOSEC [Concomitant]
  3. STALEVO 100 [Concomitant]
  4. SYNTHROID [Concomitant]
  5. HYDROCHLOROTHIAZIDE [Concomitant]
  6. METOPROLOL SUCCINATE [Concomitant]
  7. ASPIRIN [Concomitant]
  8. RELAFEN [Concomitant]
  9. VITAMIN NOS (VITAMIN NOS) [Concomitant]
  10. BUDESONIDE [Concomitant]
  11. CALTRATE (CALCIUM CARBONATE) [Concomitant]

REACTIONS (3)
  - GASTROINTESTINAL ULCER [None]
  - MALAISE [None]
  - NAUSEA [None]
